FAERS Safety Report 5019323-0 (Version None)
Quarter: 2006Q2

REPORT INFORMATION
  Report Type: 
  Country: None (occurrence: None)
  Receive Date: 20060606
  Receipt Date: 20060521
  Transmission Date: 20061013
  Serious: Yes (Other)
  Sender: FDA-Public Use
  Company Number: ZA-ROCHE-449041

PATIENT
  Age: 32 Year
  Sex: Female
  Weight: 47 kg

DRUGS (4)
  1. ROACCUTANE [Suspect]
     Indication: ACNE
     Dosage: TAKEN ALTERNATE DAYS.
     Route: 048
     Dates: start: 20060115, end: 20060215
  2. GLUTATHIONE [Concomitant]
     Route: 048
  3. ASCORBIC ACID [Concomitant]
     Route: 048
  4. DIANE [Concomitant]
     Indication: CONTRACEPTION
     Dosage: INDICATION REPORTED AS: CONTRACEPTION + ACNE.
     Route: 048
     Dates: end: 20060115

REACTIONS (3)
  - ABORTION INDUCED [None]
  - DRUG EXPOSURE DURING PREGNANCY [None]
  - PREGNANCY [None]
